FAERS Safety Report 5561021-9 (Version None)
Quarter: 2007Q4

REPORT INFORMATION
  Report Type: 
  Country: None (occurrence: None)
  Receive Date: 20071215
  Receipt Date: 20071129
  Transmission Date: 20080405
  Serious: No
  Sender: FDA-Public Use
  Company Number: US-ABBOTT-07P-163-0427478-00

PATIENT
  Sex: Female
  Weight: 83.99 kg

DRUGS (1)
  1. HUMIRA [Suspect]
     Indication: RHEUMATOID ARTHRITIS
     Route: 058
     Dates: start: 20071114

REACTIONS (7)
  - CHEST DISCOMFORT [None]
  - EYE PRURITUS [None]
  - FEELING HOT [None]
  - NAUSEA [None]
  - PAIN [None]
  - RHINORRHOEA [None]
  - SENSORY DISTURBANCE [None]
